FAERS Safety Report 9264184 (Version 1)
Quarter: 2013Q2

REPORT INFORMATION
  Report Type: Spontaneous
  Country: GB (occurrence: GB)
  Receive Date: 20130430
  Receipt Date: 20130430
  Transmission Date: 20140414
  Serious: Yes (Disabling)
  Sender: FDA-Public Use
  Company Number: GB-PFIZER INC-2013130870

PATIENT
  Age: 63 Year
  Sex: Male
  Weight: 72 kg

DRUGS (14)
  1. CHAMPIX [Suspect]
     Dosage: 500 UG, 2X/DAY
     Route: 048
     Dates: start: 20130401, end: 20130402
  2. SIMVASTATIN [Concomitant]
     Dosage: UNK
  3. ALPROSTADIL [Concomitant]
     Dosage: UNK
  4. RANITIDINE [Concomitant]
     Dosage: UNK
  5. GLYCERYL TRINITRATE [Concomitant]
     Dosage: UNK
  6. LYRICA [Concomitant]
     Dosage: UNK
  7. DIAZEPAM [Concomitant]
     Dosage: UNK
  8. ISOSORBIDE MONONITRATE [Concomitant]
     Dosage: UNK
  9. LOSARTAN [Concomitant]
     Dosage: UNK
  10. BEZAFIBRATE [Concomitant]
     Dosage: UNK
  11. TAMSULOSIN [Concomitant]
     Dosage: UNK
  12. LOPERAMIDE [Concomitant]
     Dosage: UNK
  13. CREON [Concomitant]
     Dosage: UNK
  14. ADIZEM [Concomitant]
     Dosage: UNK

REACTIONS (2)
  - Iritis [Not Recovered/Not Resolved]
  - Uveitis [Not Recovered/Not Resolved]
